FAERS Safety Report 7720573-0 (Version None)
Quarter: 2011Q3

REPORT INFORMATION
  Report Type: 
  Country: None (occurrence: None)
  Receive Date: 20110831
  Receipt Date: 20110822
  Transmission Date: 20111222
  Serious: Yes (Other)
  Sender: FDA-Public Use
  Company Number: DE-UCBSA-039706

PATIENT
  Age: 9 Year
  Sex: Male

DRUGS (1)
  1. KEPPRA [Suspect]
     Dosage: SINGLE DOSE- -500 MG

REACTIONS (1)
  - ANAPHYLACTIC SHOCK [None]
